FAERS Safety Report 22140185 (Version 1)
Quarter: 2023Q1

REPORT INFORMATION
  Report Type: Spontaneous
  Country: DE (occurrence: DE)
  Receive Date: 20230327
  Receipt Date: 20230327
  Transmission Date: 20230418
  Serious: Yes (Hospitalization)
  Sender: FDA-Public Use
  Company Number: DE-SA-SAC20230309000968

PATIENT
  Age: 75 Year
  Sex: Male

DRUGS (21)
  1. DEXAMETHASONE [Suspect]
     Active Substance: DEXAMETHASONE
     Indication: Plasma cell myeloma
     Dosage: 40 MG, D1 EVERY 28 DAYS
     Route: 065
     Dates: start: 20230110, end: 20230110
  2. DEXAMETHASONE [Suspect]
     Active Substance: DEXAMETHASONE
     Dosage: 40 MG (D8, D15)
     Route: 065
     Dates: start: 20230118, end: 20230214
  3. DEXAMETHASONE [Suspect]
     Active Substance: DEXAMETHASONE
     Dosage: 40 MG (D1, D15)
     Route: 065
     Dates: start: 20230228
  4. DEXAMETHASONE [Suspect]
     Active Substance: DEXAMETHASONE
     Dosage: 40 MG (D22)
     Route: 065
     Dates: start: 20230222, end: 20230222
  5. ISATUXIMAB [Suspect]
     Active Substance: ISATUXIMAB
     Indication: Plasma cell myeloma refractory
     Dosage: 650 MG, (D1; EVERY 28 DAYS)
     Route: 065
     Dates: start: 20230110, end: 20230110
  6. ISATUXIMAB [Suspect]
     Active Substance: ISATUXIMAB
     Dosage: 650 MG (D1, D15)
     Route: 065
     Dates: start: 20230228
  7. ISATUXIMAB [Suspect]
     Active Substance: ISATUXIMAB
     Dosage: 650 MG (D22)
     Route: 065
     Dates: start: 20230222, end: 20230222
  8. ISATUXIMAB [Suspect]
     Active Substance: ISATUXIMAB
     Dosage: 650 MG (D8, D15)
     Route: 065
     Dates: start: 20230118, end: 20230214
  9. POMALIDOMIDE [Suspect]
     Active Substance: POMALIDOMIDE
     Indication: Plasma cell myeloma
     Dosage: 4 MG (D1-D7)
     Route: 065
     Dates: start: 20230110, end: 20230116
  10. POMALIDOMIDE [Suspect]
     Active Substance: POMALIDOMIDE
     Dosage: 4 MG (D8-D21)
     Route: 065
     Dates: start: 20230118, end: 20230220
  11. POMALIDOMIDE [Suspect]
     Active Substance: POMALIDOMIDE
     Dosage: 4 MG (D22)
     Route: 065
     Dates: start: 20230222, end: 20230222
  12. POMALIDOMIDE [Suspect]
     Active Substance: POMALIDOMIDE
     Dosage: 4 MG (D1-D21)
     Route: 065
     Dates: start: 20230228
  13. ACETAMINOPHEN [Concomitant]
     Active Substance: ACETAMINOPHEN
     Indication: Prophylaxis
     Dosage: UNK UNK, CYCLIC, (QCY)
     Route: 065
     Dates: start: 20230110
  14. SIMVASTATIN [Concomitant]
     Active Substance: SIMVASTATIN
     Indication: Hypercholesterolaemia
     Dosage: UNK
     Route: 065
     Dates: start: 20160316
  15. ASPIRIN [Concomitant]
     Active Substance: ASPIRIN
     Indication: Aortic surgery
     Dosage: UNK
     Route: 065
     Dates: start: 20190522
  16. ASPIRIN [Concomitant]
     Active Substance: ASPIRIN
     Indication: Aortic valve repair
  17. VITAMIN D3 [Concomitant]
     Active Substance: CHOLECALCIFEROL
     Indication: Polyneuropathy
     Dosage: UNK
     Route: 065
     Dates: start: 20200701
  18. VITAMIN D3 [Concomitant]
     Active Substance: CHOLECALCIFEROL
     Indication: Paresis
  19. CLEMASTINE [Concomitant]
     Active Substance: CLEMASTINE
     Indication: Prophylaxis
     Dosage: UNK UNK, CYCLIC, (QCY)
     Route: 065
     Dates: start: 20230110
  20. CANDESARTAN [Concomitant]
     Active Substance: CANDESARTAN
     Indication: Hypertension
     Dosage: UNK
     Route: 065
     Dates: start: 20160316
  21. PANTOPRAZOLE [Concomitant]
     Active Substance: PANTOPRAZOLE
     Indication: Gastritis prophylaxis
     Dosage: UNK
     Route: 065
     Dates: start: 20230123

REACTIONS (5)
  - Pneumonia [Recovered/Resolved]
  - Dyspnoea [Recovered/Resolved]
  - Oropharyngeal pain [Recovering/Resolving]
  - Pyrexia [Recovered/Resolved]
  - Cough [Recovered/Resolved]

NARRATIVE: CASE EVENT DATE: 20230115
